FAERS Safety Report 21886027 (Version 1)
Quarter: 2023Q1

REPORT INFORMATION
  Report Type: Report from Study
  Country: CR (occurrence: CR)
  Receive Date: 20230119
  Receipt Date: 20230119
  Transmission Date: 20230417
  Serious: Yes (Other)
  Sender: FDA-Public Use
  Company Number: CR-002147023-NVSC2022CR281355

PATIENT
  Sex: Male
  Weight: 65.76 kg

DRUGS (1)
  1. HYDROCHLOROTHIAZIDE\VALSARTAN [Suspect]
     Active Substance: HYDROCHLOROTHIAZIDE\VALSARTAN
     Indication: Hypertension
     Dosage: UNK UNK, QD (320/12.5MG)
     Route: 048
     Dates: start: 2014, end: 202103

REACTIONS (4)
  - Bradycardia [Unknown]
  - Prostate cancer [Unknown]
  - Arrhythmia [Unknown]
  - Blood pressure increased [Unknown]

NARRATIVE: CASE EVENT DATE: 20200101
